FAERS Safety Report 7504176-9 (Version None)
Quarter: 2011Q2

REPORT INFORMATION
  Report Type: 
  Country: None (occurrence: None)
  Receive Date: 20110525
  Receipt Date: 20110513
  Transmission Date: 20111010
  Serious: Yes (Hospitalization, Other)
  Sender: FDA-Public Use
  Company Number: US-ELI_LILLY_AND_COMPANY-US201007001699

PATIENT
  Sex: Male

DRUGS (17)
  1. GLUCOSAMINE [Concomitant]
  2. PRAVASTATIN [Concomitant]
  3. FORTEO [Suspect]
     Indication: OSTEOPOROSIS
     Dosage: 20 UG, DAILY (1/D)
     Route: 065
     Dates: end: 20100616
  4. FORTEO [Suspect]
     Dosage: 20 UG, DAILY (1/D)
     Route: 065
  5. FORTEO [Suspect]
     Dosage: 20 UG, DAILY (1/D)
     Route: 065
  6. LEVOTHYROXINE SODIUM [Concomitant]
  7. ASPIRIN [Concomitant]
  8. CENTRUM SILVER [Concomitant]
  9. FORTEO [Suspect]
     Dosage: 20 UG, DAILY (1/D)
     Route: 065
     Dates: start: 20100623
  10. CO Q10 [Concomitant]
  11. LIPITOR [Concomitant]
  12. FISH OIL [Concomitant]
  13. LISINOPRIL [Concomitant]
  14. FORTEO [Suspect]
     Dosage: 20 UG, DAILY (1/D)
  15. FORTEO [Suspect]
     Dosage: 20 UG, QD
  16. VITAMIN D [Concomitant]
  17. FENOFIBRATE [Concomitant]

REACTIONS (25)
  - TENDON INJURY [None]
  - MUSCULOSKELETAL DISCOMFORT [None]
  - LIGAMENT INJURY [None]
  - JOINT DISLOCATION [None]
  - ANAESTHETIC COMPLICATION [None]
  - INJECTION SITE HAEMATOMA [None]
  - MUSCLE INJURY [None]
  - HEADACHE [None]
  - ARTHRALGIA [None]
  - INJECTION SITE PAIN [None]
  - BACK PAIN [None]
  - FALL [None]
  - ROTATOR CUFF SYNDROME [None]
  - BALANCE DISORDER [None]
  - MOBILITY DECREASED [None]
  - PAIN IN EXTREMITY [None]
  - MUSCULOSKELETAL PAIN [None]
  - FEELING ABNORMAL [None]
  - BLOOD CALCIUM DECREASED [None]
  - SENSORY DISTURBANCE [None]
  - MUSCLE ATROPHY [None]
  - LIMB DISCOMFORT [None]
  - JOINT SWELLING [None]
  - ARTHRITIS [None]
  - PAIN [None]
